FAERS Safety Report 7524971-X (Version None)
Quarter: 2011Q2

REPORT INFORMATION
  Report Type: 
  Country: None (occurrence: None)
  Receive Date: 20110606
  Receipt Date: 20110529
  Transmission Date: 20111010
  Serious: Yes (Other)
  Sender: FDA-Public Use
  Company Number: AR-GENZYME-POMP-1001549

PATIENT
  Age: 44 Year
  Sex: Male
  Weight: 64 kg

DRUGS (2)
  1. MYOZYME [Suspect]
     Indication: GLYCOGEN STORAGE DISEASE TYPE II
     Dosage: 20 MG/KG, UNK
     Route: 042
     Dates: start: 20060808
  2. LORAZEPAM [Concomitant]
     Indication: SLEEP DISORDER THERAPY
     Dosage: UNK
     Route: 065

REACTIONS (3)
  - HYPERTENSIVE CRISIS [None]
  - DYSPNOEA [None]
  - FLUSHING [None]
